FAERS Safety Report 16327482 (Version 1)
Quarter: 2019Q2

REPORT INFORMATION
  Report Type: Spontaneous
  Country: CN (occurrence: CN)
  Receive Date: 20190517
  Receipt Date: 20190517
  Transmission Date: 20190711
  Serious: Yes (Other)
  Sender: FDA-Public Use
  Company Number: CN-IMPAX LABORATORIES, LLC-2019-IPXL-00958

PATIENT

DRUGS (5)
  1. ALBENZA [Suspect]
     Active Substance: ALBENDAZOLE
     Indication: HELMINTHIC INFECTION
     Dosage: 0.2 GRAM, TID
     Route: 048
     Dates: start: 20190315, end: 20190317
  2. ACETYLCYSTEINE. [Suspect]
     Active Substance: ACETYLCYSTEINE
     Indication: PRODUCTIVE COUGH
     Dosage: 3 MILLILITER, BID
     Route: 065
     Dates: start: 20190313, end: 20190329
  3. DIFLUCAN [Concomitant]
     Active Substance: FLUCONAZOLE
     Indication: FUNGAL INFECTION
     Dosage: UNK
     Route: 065
     Dates: start: 20190320, end: 20190325
  4. ALBENZA [Suspect]
     Active Substance: ALBENDAZOLE
     Dosage: 0.4 GRAM, TID
     Route: 048
     Dates: start: 20190317, end: 20190327
  5. SULPERAZON [Concomitant]
     Active Substance: CEFOPERAZONE SODIUM\SULBACTAM SODIUM
     Indication: PRODUCT USED FOR UNKNOWN INDICATION
     Dosage: UNK
     Route: 065
     Dates: start: 20190317, end: 20190327

REACTIONS (7)
  - Cardiac failure [Unknown]
  - Oropharyngeal candidiasis [Unknown]
  - Neutrophil count decreased [Recovered/Resolved]
  - Cardiac discomfort [Unknown]
  - Pharyngeal disorder [Unknown]
  - Neutropenia [Recovered/Resolved]
  - White blood cell count decreased [Recovered/Resolved]

NARRATIVE: CASE EVENT DATE: 2019
